FAERS Safety Report 7400251-8 (Version None)
Quarter: 2011Q2

REPORT INFORMATION
  Report Type: 
  Country: None (occurrence: None)
  Receive Date: 20110407
  Receipt Date: 20110328
  Transmission Date: 20111010
  Serious: Yes (Other)
  Sender: FDA-Public Use
  Company Number: DE-ACTELION-A-CH2010-42104

PATIENT
  Sex: Female

DRUGS (5)
  1. MARCOUMAR [Concomitant]
  2. TRACLEER [Suspect]
     Indication: PULMONARY ARTERIAL HYPERTENSION
     Dosage: 31.25 MG, BID
     Route: 048
     Dates: start: 20090825, end: 20101003
  3. SILDENAFIL [Concomitant]
     Dosage: UNK
     Dates: start: 20090714
  4. AMLODIPINE [Concomitant]
     Dosage: UNK
     Dates: start: 20090714
  5. TRACLEER [Suspect]
     Dosage: 15.625 MG, BID
     Route: 048
     Dates: start: 20101004, end: 20101007

REACTIONS (6)
  - AUTOIMMUNE HEPATITIS [None]
  - BIOPSY LIVER ABNORMAL [None]
  - ASPARTATE AMINOTRANSFERASE INCREASED [None]
  - LIVER FUNCTION TEST ABNORMAL [None]
  - ALANINE AMINOTRANSFERASE INCREASED [None]
  - HEPATIC CONGESTION [None]
